FAERS Safety Report 19026646 (Version 1)
Quarter: 2021Q1

REPORT INFORMATION
  Report Type: Spontaneous
  Country: US (occurrence: US)
  Receive Date: 20210318
  Receipt Date: 20210318
  Transmission Date: 20210420
  Serious: Yes (Other)
  Sender: FDA-Public Use
  Company Number: US-NOVOPROD-794129

PATIENT
  Sex: Female

DRUGS (3)
  1. HYDRALAZINE [Concomitant]
     Active Substance: HYDRALAZINE HYDROCHLORIDE
     Indication: HYPERTENSION
     Dosage: 10 MG, TID
     Route: 065
  2. LEVEMIR [Suspect]
     Active Substance: INSULIN DETEMIR
     Indication: PRODUCT USED FOR UNKNOWN INDICATION
     Dosage: UNK
     Route: 058
  3. OLMESARTAN [Concomitant]
     Active Substance: OLMESARTAN
     Indication: HYPERTENSION
     Dosage: UNK (BID)
     Route: 065

REACTIONS (7)
  - Angiopathy [Unknown]
  - Walking aid user [Unknown]
  - Weight increased [Unknown]
  - Glycosylated haemoglobin increased [Unknown]
  - Dizziness [Unknown]
  - Hiccups [Unknown]
  - Hypertension [Unknown]

NARRATIVE: CASE EVENT DATE: 20210226
